FAERS Safety Report 4341345-3 (Version None)
Quarter: 2004Q2

REPORT INFORMATION
  Report Type: 
  Country: None (occurrence: None)
  Receive Date: 20040412
  Receipt Date: 20031202
  Transmission Date: 20050107
  Serious: Yes (Hospitalization)
  Sender: FDA-Public Use
  Company Number: 03P-163-0243439-00

PATIENT
  Age: 73 Year
  Sex: Male

DRUGS (1)
  1. BIAXIN XL [Suspect]
     Indication: BRONCHITIS
     Dosage: 500 MG 2 IN 1 D, PER ORAL
     Route: 048
     Dates: start: 20030616, end: 20030618

REACTIONS (1)
  - VOMITING [None]
